FAERS Safety Report 8958285 (Version 1)
Quarter: 2012Q4

REPORT INFORMATION
  Report Type: 
  Country: US (occurrence: US)
  Receive Date: 20121211
  Receipt Date: 20121211
  Transmission Date: 20130627
  Serious: No
  Sender: FDA-Public Use
  Company Number: US-009507513-1212USA002285

PATIENT
  Age: 40 Year
  Sex: Female

DRUGS (2)
  1. AFRIN [Suspect]
     Indication: HYPERSENSITIVITY
     Dosage: UNK, Once
     Route: 045
  2. AFRIN [Suspect]
     Indication: NASAL CONGESTION

REACTIONS (1)
  - Nasal discomfort [Unknown]
